FAERS Safety Report 4520151-0 (Version None)
Quarter: 2004Q4

REPORT INFORMATION
  Report Type: 
  Country: None (occurrence: None)
  Receive Date: 20041029
  Receipt Date: 20040901
  Transmission Date: 20050328
  Serious: No
  Sender: FDA-Public Use
  Company Number: WAES 0409USA00206

PATIENT
  Age: 47 Year
  Sex: Female

DRUGS (5)
  1. EMEND [Suspect]
     Dosage: 125 MG/1X/PO;  80 MG/DAILY/PO;  80 MG/DAILY/PO
     Route: 048
  2. EMEND [Suspect]
     Dosage: 125 MG/1X/PO;  80 MG/DAILY/PO;  80 MG/DAILY/PO
     Route: 048
  3. ADRIAMYCIN PFS [Concomitant]
  4. ANZEMET [Concomitant]
  5. CYTOXAN [Concomitant]

REACTIONS (1)
  - HEADACHE [None]
